FAERS Safety Report 23221393 (Version 3)
Quarter: 2024Q1

REPORT INFORMATION
  Report Type: Spontaneous
  Country: BE (occurrence: BE)
  Receive Date: 20231123
  Receipt Date: 20240223
  Transmission Date: 20240410
  Serious: Yes (Congenital Anomaly, Other)
  Sender: FDA-Public Use
  Company Number: BE-BIOGEN-2023BI01237010

PATIENT

DRUGS (1)
  1. TECFIDERA [Suspect]
     Active Substance: DIMETHYL FUMARATE
     Indication: Exposure during pregnancy
     Dosage: TAKEN BY THE MOTHER AT THE BEGINNING OF THE PREGNANCY
     Route: 050

REACTIONS (4)
  - Congenital cystic kidney disease [Not Recovered/Not Resolved]
  - Foetal exposure during pregnancy [Recovered/Resolved]
  - Maternal drugs affecting foetus [Not Recovered/Not Resolved]
  - Foetal malformation [Not Recovered/Not Resolved]

NARRATIVE: CASE EVENT DATE: 20230901
